FAERS Safety Report 12037861 (Version 1)
Quarter: 2016Q1

REPORT INFORMATION
  Report Type: Spontaneous
  Country: US (occurrence: None)
  Receive Date: 20160205
  Receipt Date: 20160205
  Transmission Date: 20160526
  Serious: Yes (Life-Threatening, Other)
  Sender: FDA-Public Use
  Company Number: None

PATIENT
  Age: 73 Year
  Sex: Female
  Weight: 54.43 kg

DRUGS (1)
  1. ATELVIA [Suspect]
     Active Substance: RISEDRONATE SODIUM
     Indication: ARTHRITIS
     Dosage: 1 ONCE A WEEK, TAKEN BY MOUTH
     Dates: start: 20140825, end: 20141001

REACTIONS (3)
  - Activities of daily living impaired [None]
  - Myalgia [None]
  - Abasia [None]

NARRATIVE: CASE EVENT DATE: 20140825
